FAERS Safety Report 14956434 (Version 3)
Quarter: 2019Q2

REPORT INFORMATION
  Report Type: Spontaneous
  Country: US (occurrence: US)
  Receive Date: 20180531
  Receipt Date: 20190401
  Transmission Date: 20190711
  Serious: Yes (Other)
  Sender: FDA-Public Use
  Company Number: US-PFIZER INC-2018220982

PATIENT
  Age: 55 Year
  Sex: Male

DRUGS (1)
  1. BOSULIF [Suspect]
     Active Substance: BOSUTINIB MONOHYDRATE
     Dosage: 100 MG, 5 TABLETS (500 MG), ONCE DAILY
     Route: 048
     Dates: start: 20180226

REACTIONS (5)
  - Contusion [Not Recovered/Not Resolved]
  - Blood iron decreased [Unknown]
  - Gastric infection [Unknown]
  - Burning sensation [Unknown]
  - Ulcer [Unknown]

NARRATIVE: CASE EVENT DATE: 2018
